FAERS Safety Report 24464783 (Version 1)
Quarter: 2024Q4

REPORT INFORMATION
  Report Type: Report from Study
  Country: US (occurrence: US)
  Receive Date: 20241018
  Receipt Date: 20241018
  Transmission Date: 20250114
  Serious: Yes (Other)
  Sender: RECORDATI
  Company Number: US-ORPHANEU-2024007635

PATIENT

DRUGS (14)
  1. ISTURISA [Suspect]
     Active Substance: OSILODROSTAT PHOSPHATE
     Indication: Cushing^s syndrome
     Dosage: 2 MG, BID
     Route: 048
     Dates: start: 20240809
  2. BUDESONIDE [Concomitant]
     Active Substance: BUDESONIDE
     Indication: Product used for unknown indication
     Dosage: 3 MG, QD, CAPSULE, DELAYED REL
     Route: 048
     Dates: start: 20230809
  3. BUSPIRONE HCL [Concomitant]
     Active Substance: BUSPIRONE HYDROCHLORIDE
     Indication: Product used for unknown indication
     Dosage: 15 MG, BID, TABLET
     Route: 048
     Dates: start: 20230809
  4. CARBAMAZEPINE [Concomitant]
     Active Substance: CARBAMAZEPINE
     Indication: Product used for unknown indication
     Dosage: 300 MG, BID, CAPSULE EXTENDED RELEASE
     Route: 048
     Dates: start: 20230809
  5. CETIRIZINE HCL [Concomitant]
     Active Substance: CETIRIZINE HYDROCHLORIDE
     Indication: Product used for unknown indication
     Dosage: 10 MG, QD, TABLET
     Route: 048
     Dates: start: 20230809
  6. FAMOTIDINE [Concomitant]
     Active Substance: FAMOTIDINE
     Indication: Product used for unknown indication
     Dosage: 20 MG, PRN, TABLET
     Route: 048
     Dates: start: 20230809
  7. GABAPENTIN [Concomitant]
     Active Substance: GABAPENTIN
     Indication: Product used for unknown indication
     Dosage: 900 MG, TID, 300 MG CAPSULE
     Route: 048
     Dates: start: 20230809
  8. KETOCONAZOLE [Concomitant]
     Active Substance: KETOCONAZOLE
     Indication: Product used for unknown indication
     Dosage: 300 MG, QD, 200 MG TABLET
     Route: 048
  9. LAMOTRIGINE [Concomitant]
     Active Substance: LAMOTRIGINE
     Indication: Product used for unknown indication
     Dosage: 150 MG, BID, TABLET
     Route: 048
     Dates: start: 20230809
  10. METFORMIN HYDROCHLORIDE [Concomitant]
     Active Substance: METFORMIN HYDROCHLORIDE
     Indication: Product used for unknown indication
     Dosage: 500 MG, BID, ER TABLET
     Route: 048
     Dates: start: 20230809
  11. METOPROLOL SUCCINATE [Concomitant]
     Active Substance: METOPROLOL SUCCINATE
     Indication: Product used for unknown indication
     Dosage: 50 MG, QD, TABLET
     Route: 048
     Dates: start: 20230809
  12. PANTOPRAZOLE SODIUM [Concomitant]
     Active Substance: PANTOPRAZOLE SODIUM
     Indication: Product used for unknown indication
     Dosage: 40 MG, BID, TABLET DEL
     Route: 048
     Dates: start: 20230809
  13. VITAMIN D3 [Concomitant]
     Active Substance: CHOLECALCIFEROL
     Indication: Product used for unknown indication
     Dosage: 50 MICROGRAM, QD, CAPSULE (200
     Route: 048
     Dates: start: 20230809
  14. WELLBUTRIN XL [Concomitant]
     Active Substance: BUPROPION HYDROCHLORIDE
     Indication: Product used for unknown indication
     Dosage: 300 MG, QD, TABLET EXTENDED
     Route: 048
     Dates: start: 20230809

REACTIONS (4)
  - COVID-19 pneumonia [Not Recovered/Not Resolved]
  - Weight decreased [Unknown]
  - Abdominal pain upper [Recovered/Resolved]
  - Nausea [Recovered/Resolved]

NARRATIVE: CASE EVENT DATE: 20240101
